FAERS Safety Report 6883271-1 (Version None)
Quarter: 2010Q3

REPORT INFORMATION
  Report Type: 
  Country: None (occurrence: None)
  Receive Date: 20100727
  Receipt Date: 20070910
  Transmission Date: 20110219
  Serious: Yes (Hospitalization, Other)
  Sender: FDA-Public Use
  Company Number: US-PFIZER INC-2007043484

PATIENT
  Sex: Male
  Weight: 88.5 kg

DRUGS (4)
  1. CELEBREX [Suspect]
     Indication: PAIN
     Route: 048
     Dates: start: 20010602, end: 20010622
  2. VIOXX [Suspect]
     Indication: ARTHRALGIA
     Route: 048
     Dates: start: 20000306, end: 20010829
  3. VIOXX [Suspect]
     Indication: MUSCULOSKELETAL PAIN
  4. LISINOPRIL [Concomitant]
     Dates: start: 20010314, end: 20051010

REACTIONS (1)
  - MYOCARDIAL INFARCTION [None]
